FAERS Safety Report 15928637 (Version 1)
Quarter: 2019Q1

REPORT INFORMATION
  Report Type: Spontaneous
  Country: US (occurrence: US)
  Receive Date: 20190206
  Receipt Date: 20190206
  Transmission Date: 20190417
  Serious: No
  Sender: FDA-Public Use
  Company Number: US-SA-2019SA028394

PATIENT

DRUGS (5)
  1. NASACORT [Concomitant]
     Active Substance: TRIAMCINOLONE ACETONIDE
  2. ALLEGRA ALLERGY [Suspect]
     Active Substance: FEXOFENADINE HYDROCHLORIDE
     Indication: EYE ALLERGY
     Dosage: UNK
  3. FLONASE [Concomitant]
     Active Substance: FLUTICASONE PROPIONATE
  4. CLARITIN [Concomitant]
     Active Substance: LORATADINE
  5. ZYRTEC [Concomitant]
     Active Substance: CETIRIZINE HYDROCHLORIDE

REACTIONS (1)
  - Drug ineffective [Unknown]
